FAERS Safety Report 9857810 (Version 1)
Quarter: 2014Q1

REPORT INFORMATION
  Report Type: Report from Study
  Country: AU (occurrence: AU)
  Receive Date: 20140131
  Receipt Date: 20140131
  Transmission Date: 20141002
  Serious: Yes (Other)
  Sender: FDA-Public Use
  Company Number: AU-BRISTOL-MYERS SQUIBB COMPANY-20070199

PATIENT
  Age: 75 Year
  Sex: Male

DRUGS (6)
  1. ABATACEPT SUBQ INJECTION 125MG/ML [Suspect]
     Indication: RHEUMATOID ARTHRITIS
     Dosage: 1 DF: 125MG/ML
     Route: 058
     Dates: start: 20091023
  2. FLOMAXTRA [Concomitant]
  3. OLMETEC [Concomitant]
  4. ATENOLOL [Concomitant]
  5. METHOTREXATE [Concomitant]
  6. FOLIC ACID [Concomitant]

REACTIONS (1)
  - Macular fibrosis [Unknown]
